FAERS Safety Report 9401047 (Version 2)
Quarter: 2013Q3

REPORT INFORMATION
  Report Type: Report from Study
  Country: US (occurrence: US)
  Receive Date: 20130715
  Receipt Date: 20130805
  Transmission Date: 20140515
  Serious: Yes (Other)
  Sender: FDA-Public Use
  Company Number: US-BAYER-2013-085676

PATIENT
  Age: 65 Year
  Sex: Female

DRUGS (2)
  1. STIVARGA [Suspect]
     Indication: COLON CANCER
     Dosage: 160 MG, (AM X 21 DAYS)  QD
     Route: 048
     Dates: start: 201306
  2. STIVARGA [Suspect]
     Indication: COLON CANCER
     Dosage: 120 MG, (AM X 21 DAYS) QD
     Route: 048

REACTIONS (4)
  - Dry mouth [None]
  - Rash generalised [None]
  - Constipation [None]
  - Sensory disturbance [None]
